FAERS Safety Report 8131508-3 (Version None)
Quarter: 2012Q1

REPORT INFORMATION
  Report Type: 
  Country: None (occurrence: None)
  Receive Date: 20120213
  Receipt Date: 20120203
  Transmission Date: 20120608
  Serious: Yes (Other)
  Sender: FDA-Public Use
  Company Number: US-CELGENEUS-163-21880-12011004

PATIENT
  Sex: Male
  Weight: 68.1 kg

DRUGS (15)
  1. VITAMIN B-12 [Concomitant]
     Route: 065
  2. REVLIMID [Suspect]
     Indication: MYELOFIBROSIS
     Dosage: 10 MILLIGRAM
     Route: 048
     Dates: start: 20100402
  3. ASPIRIN [Concomitant]
     Route: 065
  4. FLAXSEED OIL [Concomitant]
     Route: 065
  5. LISINOPRIL [Concomitant]
     Route: 065
  6. CO Q 10 [Concomitant]
     Route: 065
  7. ATENOLOL [Concomitant]
     Route: 065
  8. FISH OIL [Concomitant]
     Route: 065
  9. MULTI-VITAMINS [Concomitant]
     Route: 065
  10. PRAVASTATIN [Concomitant]
     Route: 065
  11. TRAMADOL HCL [Concomitant]
     Route: 065
  12. CALCIUM [Concomitant]
     Route: 065
  13. NIACIN [Concomitant]
     Route: 065
  14. MORPHINE SULFATE [Concomitant]
     Route: 065
  15. ASCORBIC ACID [Concomitant]
     Route: 065

REACTIONS (2)
  - PAIN [None]
  - MALIGNANT MELANOMA [None]
